FAERS Safety Report 9165324 (Version 1)
Quarter: 2013Q1

REPORT INFORMATION
  Report Type: Spontaneous
  Country: US (occurrence: None)
  Receive Date: 20130314
  Receipt Date: 20130314
  Transmission Date: 20140127
  Serious: Yes (Other)
  Sender: FDA-Public Use
  Company Number: None

PATIENT
  Sex: Female

DRUGS (1)
  1. METHYLCELLULOSE [Suspect]

REACTIONS (5)
  - Choking sensation [None]
  - Drug administration error [None]
  - Feeling abnormal [None]
  - Abdominal distension [None]
  - Incorrect dose administered [None]
